FAERS Safety Report 6474421-X (Version None)
Quarter: 2009Q4

REPORT INFORMATION
  Report Type: 
  Country: None (occurrence: None)
  Receive Date: 20091204
  Receipt Date: 20091123
  Transmission Date: 20100525
  Serious: Yes (Hospitalization, Other)
  Sender: FDA-Public Use
  Company Number: FR-ELI_LILLY_AND_COMPANY-FR200911005707

PATIENT
  Sex: Female

DRUGS (5)
  1. HUMALOG MIX 75/25 [Suspect]
     Indication: TYPE 1 DIABETES MELLITUS
     Dosage: UNK, UNKNOWN
     Route: 058
     Dates: end: 20081118
  2. TRIATEC [Concomitant]
     Dosage: 2.5 MG, DAILY (1/D)
     Route: 048
  3. BEFIZAL [Concomitant]
     Dosage: UNK, UNK
     Route: 048
     Dates: end: 20081118
  4. PLAVIX [Concomitant]
     Dosage: 75 MG, UNK
     Route: 048
  5. LEVOTHYROXINE SODIUM [Concomitant]
     Dosage: 75 UG, UNK
     Route: 048

REACTIONS (5)
  - BUNDLE BRANCH BLOCK LEFT [None]
  - HYPOGLYCAEMIA [None]
  - RENAL FAILURE [None]
  - RHABDOMYOLYSIS [None]
  - SYNCOPE [None]
